FAERS Safety Report 8010472-1 (Version None)
Quarter: 2011Q4

REPORT INFORMATION
  Report Type: 
  Country: None (occurrence: None)
  Receive Date: 20111223
  Receipt Date: 20111223
  Transmission Date: 20120403
  Serious: Yes (Hospitalization, Disabling, Other)
  Sender: FDA-Public Use
  Company Number: None

PATIENT
  Age: 36 Year
  Sex: Male

DRUGS (6)
  1. ACTOS [Concomitant]
  2. GLUCOPHAGE XR [Concomitant]
  3. METFORMIN HCL [Concomitant]
  4. PAXIL [Concomitant]
  5. SEROQUEL [Suspect]
     Indication: DRUG THERAPY
     Dosage: 100 MG A DAY 047
     Route: 048
     Dates: start: 20020419, end: 20020813
  6. SEROQUEL [Suspect]
     Dosage: 300 MG A DAY 047
     Route: 048

REACTIONS (6)
  - VISUAL ACUITY REDUCED [None]
  - PERSONALITY CHANGE [None]
  - HAEMORRHAGE [None]
  - DEPRESSED LEVEL OF CONSCIOUSNESS [None]
  - DIABETES MELLITUS [None]
  - APHASIA [None]
